FAERS Safety Report 7968363-8 (Version None)
Quarter: 2011Q4

REPORT INFORMATION
  Report Type: 
  Country: None (occurrence: None)
  Receive Date: 20111209
  Receipt Date: 20111205
  Transmission Date: 20120403
  Serious: Yes (Death)
  Sender: FDA-Public Use
  Company Number: US-CELGENEUS-163-21880-11120615

PATIENT
  Sex: Female

DRUGS (8)
  1. GLIMEPIRIDE [Concomitant]
     Route: 065
  2. REVLIMID [Suspect]
     Dosage: 5 MILLIGRAM
     Route: 048
     Dates: start: 20110920
  3. JANUMET [Concomitant]
     Route: 065
  4. NITROGLYCERIN [Concomitant]
     Route: 065
  5. PLAVIX [Concomitant]
     Route: 065
  6. OMEPRAZOLE [Concomitant]
     Route: 065
  7. ASPIRIN [Concomitant]
     Route: 065
  8. NIASPAN [Concomitant]
     Route: 065

REACTIONS (1)
  - DEATH [None]
